FAERS Safety Report 8088486 (Version 4)
Quarter: 2014Q1

REPORT INFORMATION
  Report Type: Spontaneous
  Country: US (occurrence: US)
  Receive Date: 20110812
  Receipt Date: 20140124
  Transmission Date: 20141002
  Serious: Yes (Hospitalization, Other)
  Sender: FDA-Public Use
  Company Number: US-ASTRAZENECA-2011SE46430

PATIENT
  Age: 54 Year
  Sex: Male
  Weight: 96.2 kg

DRUGS (9)
  1. SEROQUEL [Suspect]
     Indication: AGORAPHOBIA
     Dosage: TOTAL 800 MG: 200 MG IN THE MORNING, AT LUNCH, AT DINNER, AT BEDTIMES
     Route: 048
  2. SEROQUEL [Suspect]
     Indication: AGORAPHOBIA
     Route: 048
  3. SEROQUEL [Suspect]
     Indication: AGORAPHOBIA
     Dosage: GENERIC
     Route: 048
  4. HYDROCODONE [Concomitant]
  5. XANAX [Concomitant]
  6. CARISOPRODOL [Concomitant]
  7. THORAZINE [Concomitant]
     Indication: AGORAPHOBIA
  8. HALDOL [Concomitant]
     Indication: AGORAPHOBIA
  9. 15-20 OTHER MEDICATIONS FOR AGORAPHOBIA [Concomitant]
     Indication: AGORAPHOBIA

REACTIONS (20)
  - Paralysis [Unknown]
  - Intervertebral disc protrusion [Unknown]
  - Insomnia [Unknown]
  - Hyperhidrosis [Unknown]
  - Head titubation [Unknown]
  - Nervousness [Unknown]
  - Weight decreased [Unknown]
  - Fall [Unknown]
  - Malaise [Unknown]
  - Decreased activity [Unknown]
  - Agoraphobia [Unknown]
  - Antisocial behaviour [Unknown]
  - Depressed mood [Unknown]
  - Tremor [Unknown]
  - Palpitations [Unknown]
  - Therapeutic response unexpected [Unknown]
  - Therapeutic response unexpected with drug substitution [Unknown]
  - Intentional drug misuse [Unknown]
  - Off label use [Unknown]
  - Drug dose omission [Unknown]
